FAERS Safety Report 6206721-2 (Version None)
Quarter: 2009Q2

REPORT INFORMATION
  Report Type: 
  Country: None (occurrence: None)
  Receive Date: 20090528
  Receipt Date: 20090518
  Transmission Date: 20091009
  Serious: Yes (Other)
  Sender: FDA-Public Use
  Company Number: US-NOVOPROD-287396

PATIENT

DRUGS (1)
  1. NORDITROPIN [Suspect]
     Indication: NOONAN SYNDROME
     Route: 058

REACTIONS (2)
  - LEFT VENTRICULAR HYPERTROPHY [None]
  - TRICUSPID VALVE INCOMPETENCE [None]
